FAERS Safety Report 19797321 (Version 3)
Quarter: 2022Q1

REPORT INFORMATION
  Report Type: Report from Study
  Country: DE (occurrence: DE)
  Receive Date: 20210907
  Receipt Date: 20220121
  Transmission Date: 20220423
  Serious: No
  Sender: FDA-Public Use
  Company Number: DE-TAKEDA-2021TUS028217

PATIENT

DRUGS (3)
  1. PARATHYROID HORMONE [Suspect]
     Active Substance: PARATHYROID HORMONE
     Indication: Product used for unknown indication
     Dosage: 100 MICROGRAM, QD
     Route: 050
  2. PARATHYROID HORMONE [Suspect]
     Active Substance: PARATHYROID HORMONE
     Indication: Product used for unknown indication
     Dosage: 100 MICROGRAM, QD
     Route: 050
  3. PARATHYROID HORMONE [Suspect]
     Active Substance: PARATHYROID HORMONE
     Indication: Product used for unknown indication
     Dosage: 100 MICROGRAM, QD
     Route: 050

REACTIONS (7)
  - Sleep disorder [Recovered/Resolved]
  - Back pain [Recovering/Resolving]
  - Bone pain [Recovering/Resolving]
  - Pain [Recovering/Resolving]
  - Arthralgia [Recovering/Resolving]
  - Pain in extremity [Recovering/Resolving]
  - Headache [Recovered/Resolved]

NARRATIVE: CASE EVENT DATE: 20210218
